FAERS Safety Report 20785688 (Version 1)
Quarter: 2022Q2

REPORT INFORMATION
  Report Type: Spontaneous
  Country: US (occurrence: None)
  Receive Date: 20220504
  Receipt Date: 20220504
  Transmission Date: 20220721
  Serious: No
  Sender: FDA-Public Use
  Company Number: US-ROCHE-2825507

PATIENT

DRUGS (1)
  1. OCREVUS [Suspect]
     Active Substance: OCRELIZUMAB
     Indication: Product used for unknown indication
     Dosage: LAST OCRELIZUMAB INFUSION WAS 16/SEP/2020 AND THIS WAS HIS 3RD 600 MG INFUSION.
     Route: 065

REACTIONS (2)
  - Pruritus [Recovered/Resolved]
  - Paraesthesia oral [Recovered/Resolved]
